FAERS Safety Report 4756615-4 (Version None)
Quarter: 2005Q3

REPORT INFORMATION
  Report Type: 
  Country: None (occurrence: None)
  Receive Date: 20050830
  Receipt Date: 20050824
  Transmission Date: 20060218
  Serious: Yes (Death, Other)
  Sender: FDA-Public Use
  Company Number: PHBS2005CL12474

PATIENT
  Age: 10 Year
  Sex: Male

DRUGS (1)
  1. TORECAN [Suspect]
     Indication: NAUSEA
     Dosage: UNK, ONCE/SINGLE
     Dates: start: 20000129, end: 20000129

REACTIONS (8)
  - CARDIO-RESPIRATORY ARREST [None]
  - CONVULSION [None]
  - DIZZINESS [None]
  - DRY MOUTH [None]
  - NAUSEA [None]
  - SOMNOLENCE [None]
  - TACHYCARDIA [None]
  - THIRST [None]
